FAERS Safety Report 6464469-3 (Version None)
Quarter: 2009Q4

REPORT INFORMATION
  Report Type: 
  Country: None (occurrence: None)
  Receive Date: 20091124
  Receipt Date: 20091109
  Transmission Date: 20100525
  Serious: Yes (Hospitalization, Disabling)
  Sender: FDA-Public Use
  Company Number: 20090540

PATIENT
  Age: 13 Year
  Sex: Male

DRUGS (5)
  1. DEXAMETHASONE SODIUM PHOSPHATE [Suspect]
     Indication: LYMPHOCYTIC LEUKAEMIA
     Dosage: INJECTION NOS
  2. METHOTREXATE [Suspect]
     Dosage: INTRATHECAL
     Route: 037
  3. VINCRISTINE [Suspect]
  4. ETOPOSIDE [Suspect]
  5. CYTARABINE [Suspect]

REACTIONS (5)
  - LEUKOENCEPHALOPATHY [None]
  - MUSCULAR WEAKNESS [None]
  - MYELOPATHY [None]
  - PARAPLEGIA [None]
  - SENSORY LOSS [None]
